FAERS Safety Report 10224493 (Version 1)
Quarter: 2014Q1

REPORT INFORMATION
  Report Type: Spontaneous
  Country: US (occurrence: None)
  Receive Date: 20140306
  Receipt Date: 20140306
  Transmission Date: 20141002
  Serious: Yes (Other)
  Sender: FDA-Public Use
  Company Number: 163-21880-13093595

PATIENT
  Age: 57 Year
  Sex: Male
  Weight: 127.01 kg

DRUGS (9)
  1. REVLIMID (LENALIDOMIDE) (10 MILLIGRAM, CAPSULES) [Suspect]
     Indication: APLASTIC ANAEMIA
     Dosage: 10 MG, 1 IN 1 D, PO  03/ 2009 - UNKNOWN THERAPY DATES
     Route: 048
     Dates: start: 200903
  2. FOLIC ACID (FOLIC ACID) [Concomitant]
  3. BABAY ASPIRIN (ACETYLSALIC ACID) ? [Concomitant]
  4. OMEPRAZOLE (OMEPRAZOLE) [Concomitant]
  5. ZOLOFT (SERTRALINE HYDROCHLORIDE) [Concomitant]
  6. GABAPENTIN (GABAPENTIN) [Concomitant]
  7. KLONOPIN (CLONAZEPAM) [Concomitant]
  8. LORATADINE (LORATADINE) (LORATADINE) [Concomitant]
  9. ZOSTAVAX (VARICELLA VIRUS VACCINE, LIVE) [Concomitant]

REACTIONS (2)
  - Hypoglycaemia [None]
  - Loss of consciousness [None]
